FAERS Safety Report 23244982 (Version 1)
Quarter: 2023Q4

REPORT INFORMATION
  Report Type: Spontaneous
  Country: US (occurrence: US)
  Receive Date: 20231130
  Receipt Date: 20231130
  Transmission Date: 20240110
  Serious: No
  Sender: FDA-Public Use
  Company Number: US-ALVOGEN-2022088518

PATIENT
  Sex: Female

DRUGS (1)
  1. TERIPARATIDE [Suspect]
     Active Substance: TERIPARATIDE
     Indication: Product used for unknown indication
     Dosage: ONCE A DAY BUT LATER SWITCHED TO EVERY OTHER DAY. LAST DISPENSED: 23/AUG/22
     Dates: start: 202207

REACTIONS (2)
  - Pain [Unknown]
  - Intentional product misuse [Unknown]
